FAERS Safety Report 24000925 (Version 2)
Quarter: 2024Q3

REPORT INFORMATION
  Report Type: Spontaneous
  Country: CN (occurrence: CN)
  Receive Date: 20240621
  Receipt Date: 20240814
  Transmission Date: 20241017
  Serious: Yes (Hospitalization)
  Sender: TAKEDA
  Company Number: CN-teijin-202402163_FE_P_1

PATIENT
  Age: 47 Year
  Sex: Male
  Weight: 68.6 kg

DRUGS (1)
  1. FEBUXOSTAT [Suspect]
     Active Substance: FEBUXOSTAT
     Indication: Gouty arthritis
     Dosage: 20 MILLIGRAM, QD
     Route: 048
     Dates: start: 20240401, end: 20240616

REACTIONS (2)
  - Henoch-Schonlein purpura [Unknown]
  - Rash [Unknown]

NARRATIVE: CASE EVENT DATE: 20240401
